FAERS Safety Report 10994672 (Version 2)
Quarter: 2015Q2

REPORT INFORMATION
  Report Type: Other
  Country: GB (occurrence: GB)
  Receive Date: 20150407
  Receipt Date: 20150424
  Transmission Date: 20150821
  Serious: Yes (Other)
  Sender: FDA-Public Use
  Company Number: GB-APOTEX-2015AP007729

PATIENT
  Age: 55 Year
  Sex: Male
  Weight: 60 kg

DRUGS (4)
  1. BENDROFLUAZIDE [Suspect]
     Active Substance: BENDROFLUMETHIAZIDE
     Indication: BLOOD PRESSURE
     Dosage: UNK
     Route: 048
  2. PERINDOPRIL TABLETS [Suspect]
     Active Substance: PERINDOPRIL
     Indication: BLOOD PRESSURE
     Dosage: UNK
     Route: 065
  3. FELODIPINE. [Suspect]
     Active Substance: FELODIPINE
     Indication: BLOOD PRESSURE
     Dosage: UNK
     Route: 048
  4. LITAK [Suspect]
     Active Substance: CLADRIBINE
     Indication: HAIRY CELL LEUKAEMIA
     Dosage: UNK
     Route: 058
     Dates: start: 20120213, end: 20120217

REACTIONS (2)
  - Myalgia [Not Recovered/Not Resolved]
  - Arthralgia [Not Recovered/Not Resolved]

NARRATIVE: CASE EVENT DATE: 20120401
